FAERS Safety Report 22730559 (Version 4)
Quarter: 2024Q4

REPORT INFORMATION
  Report Type: Spontaneous
  Country: FR (occurrence: FR)
  Receive Date: 20230720
  Receipt Date: 20241220
  Transmission Date: 20250114
  Serious: Yes (Hospitalization, Disabling, Other)
  Sender: TEVA
  Company Number: FR-CHEPLA-2023007632

PATIENT
  Age: 30 Year
  Sex: Male
  Weight: 88 kg

DRUGS (25)
  1. PREDNISONE [Suspect]
     Active Substance: PREDNISONE
     Indication: Pulmonary sarcoidosis
     Route: 065
  2. PREDNISONE [Suspect]
     Active Substance: PREDNISONE
     Indication: Pulmonary sarcoidosis
     Dosage: 50 MG, QD
     Route: 065
     Dates: start: 201905, end: 20190520
  3. PREDNISONE [Suspect]
     Active Substance: PREDNISONE
     Indication: Pulmonary sarcoidosis
     Dosage: 15 MG, QD
     Route: 065
     Dates: start: 201906, end: 201907
  4. PREDNISONE [Suspect]
     Active Substance: PREDNISONE
     Indication: Pulmonary sarcoidosis
     Dosage: 20 MG, QD
     Route: 065
     Dates: start: 201906, end: 201906
  5. PREDNISONE [Suspect]
     Active Substance: PREDNISONE
     Indication: Pulmonary sarcoidosis
     Dosage: 60 MG, QD
     Route: 065
     Dates: start: 201905, end: 20190513
  6. PREDNISONE [Suspect]
     Active Substance: PREDNISONE
     Indication: Pulmonary sarcoidosis
     Dosage: MORNING AT 8 AM
     Route: 065
     Dates: end: 20190508
  7. PREDNISONE [Suspect]
     Active Substance: PREDNISONE
     Indication: Pulmonary sarcoidosis
     Dosage: 30 MG, QD
     Route: 065
     Dates: start: 2019, end: 20190603
  8. PREDNISONE [Suspect]
     Active Substance: PREDNISONE
     Indication: Pulmonary sarcoidosis
     Dosage: 40 MG, QD
     Route: 065
     Dates: start: 201905, end: 20190527
  9. PREDNISONE [Suspect]
     Active Substance: PREDNISONE
     Indication: Pulmonary sarcoidosis
     Dosage: 25 MG, QD
     Route: 065
     Dates: start: 201906, end: 201906
  10. PREDNISONE [Suspect]
     Active Substance: PREDNISONE
     Indication: Neurosarcoidosis
     Route: 065
     Dates: start: 20190509, end: 20190520
  11. PREDNISONE [Suspect]
     Active Substance: PREDNISONE
     Indication: Neurosarcoidosis
     Route: 065
     Dates: start: 20190618, end: 201909
  12. PREDNISONE [Suspect]
     Active Substance: PREDNISONE
     Indication: Neurosarcoidosis
     Dosage: MORNING AT 8 AM
     Route: 065
     Dates: start: 20190430, end: 20190508
  13. PREDNISONE [Suspect]
     Active Substance: PREDNISONE
     Indication: Neurosarcoidosis
     Route: 065
     Dates: start: 20190604, end: 20190617
  14. PREDNISONE [Suspect]
     Active Substance: PREDNISONE
     Indication: Neurosarcoidosis
     Route: 065
     Dates: start: 20190521, end: 20190603
  15. SOLU-MEDROL [Suspect]
     Active Substance: METHYLPREDNISOLONE SODIUM SUCCINATE
     Indication: Pulmonary sarcoidosis
     Dosage: TIME INTERVAL: TOTAL: 3-DAY BOLUS OF SOLUMEDROL 120 MG., SINGLE, HIGH-DOSE CORTICOSTEROID TREATMENT
     Route: 042
     Dates: start: 20190423, end: 20190425
  16. DUPIXENT [Concomitant]
     Active Substance: DUPILUMAB
     Indication: Dermatitis atopic
     Route: 065
     Dates: start: 201803
  17. METHOTREXATE SODIUM [Suspect]
     Active Substance: METHOTREXATE SODIUM
     Indication: Neurosarcoidosis
     Route: 065
     Dates: end: 202112
  18. METHOTREXATE SODIUM [Suspect]
     Active Substance: METHOTREXATE SODIUM
     Indication: Neurosarcoidosis
     Route: 065
  19. METHOTREXATE SODIUM [Suspect]
     Active Substance: METHOTREXATE SODIUM
     Indication: Neurosarcoidosis
     Dosage: 15 MG, WEEKLY ON WEDNESDAYS; IMETH [METHOTREXATE]
     Route: 065
     Dates: start: 20190528
  20. DESONIDE [Concomitant]
     Active Substance: DESONIDE
     Indication: Hand dermatitis
     Dosage: USES SMALL AMOUNTS
     Route: 065
  21. OLUMIANT [Concomitant]
     Active Substance: BARICITINIB
     Indication: Dermatitis atopic
     Dosage: 4 MG, QD
     Route: 065
  22. NERISONE [Concomitant]
     Active Substance: DIFLUCORTOLONE VALERATE
     Indication: Eczema
     Dosage: USES SMALL AMOUNTS
     Route: 065
  23. ETHAMBUTOL HYDROCHLORIDE [Concomitant]
     Active Substance: ETHAMBUTOL HYDROCHLORIDE
     Indication: Tuberculosis
     Dosage: 3 COMP./DAY, FOUR-COURSE
     Route: 065
  24. LEUCOVORIN [Concomitant]
     Active Substance: LEUCOVORIN\LEUCOVORIN CALCIUM
     Indication: Product used for unknown indication
     Dosage: ON SATURDAYS
     Route: 065
  25. RIFATER [Concomitant]
     Active Substance: ISONIAZID\PYRAZINAMIDE\RIFAMPIN
     Indication: Tuberculosis
     Dosage: 6 COMP./DAY, FOUR-COURSE
     Route: 065

REACTIONS (4)
  - Osteonecrosis [Recovered/Resolved with Sequelae]
  - Staphylococcal bacteraemia [Recovered/Resolved with Sequelae]
  - Sepsis [Recovered/Resolved with Sequelae]
  - Off label use [Unknown]

NARRATIVE: CASE EVENT DATE: 20200101
